FAERS Safety Report 9419161 (Version 1)
Quarter: 2013Q3

REPORT INFORMATION
  Report Type: Spontaneous
  Country: CA (occurrence: CA)
  Receive Date: 20130725
  Receipt Date: 20130725
  Transmission Date: 20140515
  Serious: Yes (Other)
  Sender: FDA-Public Use
  Company Number: CA-AMGEN-CANSP2013050827

PATIENT
  Sex: Female

DRUGS (1)
  1. PROLIA [Suspect]
     Indication: OSTEOPOROSIS POSTMENOPAUSAL
     Dosage: UNK
     Dates: start: 20130322

REACTIONS (6)
  - Urinary tract infection [Unknown]
  - Oral pain [Unknown]
  - Gingival pain [Unknown]
  - Oral infection [Unknown]
  - Gingival abscess [Recovering/Resolving]
  - Fatigue [Unknown]
